FAERS Safety Report 7919834-1 (Version None)
Quarter: 2011Q4

REPORT INFORMATION
  Report Type: 
  Country: None (occurrence: None)
  Receive Date: 20111117
  Receipt Date: 20111117
  Transmission Date: 20120403
  Serious: No
  Sender: FDA-Public Use
  Company Number: None

PATIENT
  Age: 44 Year
  Sex: Female
  Weight: 72.574 kg

DRUGS (2)
  1. SIMVASTATIN [Suspect]
     Indication: BLOOD TRIGLYCERIDES INCREASED
     Dates: start: 20110808, end: 20111111
  2. SIMVASTATIN [Suspect]
     Indication: BLOOD CHOLESTEROL INCREASED
     Dates: start: 20110808, end: 20111111

REACTIONS (6)
  - JOINT STIFFNESS [None]
  - JOINT SWELLING [None]
  - PARAESTHESIA [None]
  - OEDEMA PERIPHERAL [None]
  - HYPOAESTHESIA [None]
  - ARTHRALGIA [None]
